FAERS Safety Report 8425453-3 (Version None)
Quarter: 2012Q2

REPORT INFORMATION
  Report Type: 
  Country: None (occurrence: None)
  Receive Date: 20120605
  Receipt Date: 20120523
  Transmission Date: 20120825
  Serious: Yes (Hospitalization)
  Sender: FDA-Public Use
  Company Number: GER/UKI/12/0024447

PATIENT
  Age: 80 Year
  Sex: Male

DRUGS (8)
  1. OMEPRAZOLE [Suspect]
     Indication: GASTROINTESTINAL DISORDER
     Dosage: 10 MG, 1 IN 1 D, ORAL
     Route: 048
     Dates: start: 20120131, end: 20120418
  2. CITALOPRAM HYDROBROMIDE [Concomitant]
  3. LEUPRORELINE (LEUPRORELIN) [Concomitant]
  4. BISOPROLOL FUMARATE [Concomitant]
  5. MIDODRINE HYDROCHLORIDE [Concomitant]
  6. ASPIRIN [Concomitant]
  7. ATORVASTATIN [Concomitant]
  8. ACETAMINOPHEN [Concomitant]

REACTIONS (5)
  - BLOOD CALCIUM DECREASED [None]
  - BLOOD POTASSIUM DECREASED [None]
  - BLOOD MAGNESIUM DECREASED [None]
  - DIARRHOEA [None]
  - ELECTROLYTE IMBALANCE [None]
